FAERS Safety Report 23456986 (Version 2)
Quarter: 2024Q1

REPORT INFORMATION
  Report Type: Spontaneous
  Country: US (occurrence: US)
  Receive Date: 20240130
  Receipt Date: 20240312
  Transmission Date: 20240409
  Serious: No
  Sender: FDA-Public Use
  Company Number: US-MYLANLABS-2024M1007602

PATIENT
  Age: 81 Year
  Weight: 53 kg

DRUGS (4)
  1. TYRVAYA [Suspect]
     Active Substance: VARENICLINE TARTRATE
     Indication: Dry eye
     Dosage: 0.03 MILLIGRAM, BID
     Route: 045
     Dates: start: 202312, end: 202401
  2. FLONASE [Concomitant]
     Active Substance: FLUTICASONE PROPIONATE
     Indication: Hypersensitivity
     Dosage: UNK
     Route: 065
  3. IVIZIA DRY EYE [Concomitant]
     Active Substance: POVIDONE
     Dosage: UNK
     Route: 065
  4. EYEPROMISE EZ TEARS [Concomitant]
     Dosage: UNK
     Route: 065

REACTIONS (3)
  - Nasal discomfort [Unknown]
  - Sinusitis [Unknown]
  - Rosacea [Unknown]

NARRATIVE: CASE EVENT DATE: 20240125
